FAERS Safety Report 7073643-7 (Version None)
Quarter: 2010Q4

REPORT INFORMATION
  Report Type: 
  Country: None (occurrence: None)
  Receive Date: 20101029
  Receipt Date: 20100723
  Transmission Date: 20110411
  Serious: No
  Sender: FDA-Public Use
  Company Number: A0872129A

PATIENT
  Age: 86 Year
  Sex: Male

DRUGS (9)
  1. ADVAIR DISKUS 100/50 [Suspect]
     Indication: COUGH
     Dosage: 1PUFF TWICE PER DAY
     Route: 055
  2. CAPTOPRIL [Concomitant]
  3. METOPROLOL [Concomitant]
  4. TRIMIPRAMINE MALEATE [Concomitant]
  5. CADUET [Concomitant]
  6. ASPIRIN [Concomitant]
  7. ALOPURINOL [Concomitant]
  8. PREVACID [Concomitant]
  9. DICYCLOMINE [Concomitant]

REACTIONS (1)
  - DYSPHONIA [None]
